FAERS Safety Report 24461836 (Version 1)
Quarter: 2024Q4

REPORT INFORMATION
  Report Type: Report from Study
  Country: ZA (occurrence: ZA)
  Receive Date: 20241018
  Receipt Date: 20241018
  Transmission Date: 20250114
  Serious: No
  Sender: ROCHE
  Company Number: ZA-ROCHE-3545404

PATIENT
  Age: 43 Year
  Sex: Male

DRUGS (1)
  1. MABTHERA [Suspect]
     Active Substance: RITUXIMAB
     Indication: Rheumatoid arthritis
     Route: 041

REACTIONS (4)
  - Haemoglobin decreased [Unknown]
  - White blood cell count increased [Unknown]
  - Blood creatinine decreased [Unknown]
  - C-reactive protein increased [Unknown]
